FAERS Safety Report 20539363 (Version 5)
Quarter: 2022Q4

REPORT INFORMATION
  Report Type: Report from Study
  Country: CA (occurrence: CA)
  Receive Date: 20220302
  Receipt Date: 20221111
  Transmission Date: 20230112
  Serious: Yes (Life-Threatening, Hospitalization, Other)
  Sender: FDA-Public Use
  Company Number: CA-JNJFOC-20210810795

PATIENT
  Age: 62 Year
  Sex: Male
  Weight: 81.266 kg

DRUGS (1)
  1. REMICADE [Suspect]
     Active Substance: INFLIXIMAB
     Indication: Crohn^s disease
     Dosage: THE THERAPY START DATE IN THE FOLLOW UP WAS REPORTED AS 24-FEB-2012 800MG EVERY 8 WEEKS. EXPIRY DATE
     Route: 042
     Dates: start: 20120208

REACTIONS (6)
  - Epiglottitis [Recovered/Resolved]
  - Gastrointestinal tube insertion [Recovered/Resolved]
  - Tracheostomy [Recovered/Resolved]
  - Tracheal stenosis [Recovered/Resolved]
  - Oesophageal stenosis [Unknown]
  - SARS-CoV-2 test positive [Unknown]

NARRATIVE: CASE EVENT DATE: 20210721
